FAERS Safety Report 5676349-1 (Version None)
Quarter: 2008Q1

REPORT INFORMATION
  Report Type: 
  Country: None (occurrence: None)
  Receive Date: 20080321
  Receipt Date: 20080311
  Transmission Date: 20080703
  Serious: Yes (Hospitalization)
  Sender: FDA-Public Use
  Company Number: FR-PFIZER INC-2008022978

PATIENT
  Sex: Male

DRUGS (4)
  1. XANAX [Suspect]
     Route: 048
     Dates: start: 20070903, end: 20071022
  2. SERTRALINE [Suspect]
     Route: 048
     Dates: start: 20070910, end: 20071022
  3. ALL OTHER THERAPEUTIC PRODUCTS [Suspect]
     Dates: start: 20070903, end: 20071022
  4. MORPHINE [Suspect]

REACTIONS (5)
  - BRADYPHRENIA [None]
  - GAIT DISTURBANCE [None]
  - MUSCULAR WEAKNESS [None]
  - PARAESTHESIA [None]
  - URINARY RETENTION [None]
